FAERS Safety Report 15334674 (Version 1)
Quarter: 2018Q3

REPORT INFORMATION
  Report Type: Spontaneous
  Country: US (occurrence: US)
  Receive Date: 20180830
  Receipt Date: 20180830
  Transmission Date: 20181010
  Serious: Yes (Other)
  Sender: FDA-Public Use
  Company Number: US-BAYER-2018-162758

PATIENT
  Age: 41 Year
  Sex: Female

DRUGS (1)
  1. KYLEENA [Suspect]
     Active Substance: LEVONORGESTREL
     Indication: CONTRACEPTION
     Dosage: DAILY DOSE 17.5 ?G
     Route: 015
     Dates: start: 20180720

REACTIONS (1)
  - Device dislocation [None]

NARRATIVE: CASE EVENT DATE: 20180823
